FAERS Safety Report 8058637-7 (Version None)
Quarter: 2012Q1

REPORT INFORMATION
  Report Type: 
  Country: None (occurrence: None)
  Receive Date: 20120120
  Receipt Date: 20120106
  Transmission Date: 20120608
  Serious: Yes (Hospitalization)
  Sender: FDA-Public Use
  Company Number: US-MYLANLABS-2012S1000702

PATIENT
  Age: 48 Year
  Sex: Male

DRUGS (2)
  1. METFORMIN HCL [Suspect]
     Route: 065
  2. SIMVASTATIN [Concomitant]
     Dosage: 80MG DAILY
     Route: 065

REACTIONS (1)
  - HEPATOTOXICITY [None]
